FAERS Safety Report 18839950 (Version 1)
Quarter: 2021Q1

REPORT INFORMATION
  Report Type: Report from Study
  Country: US (occurrence: US)
  Receive Date: 20210204
  Receipt Date: 20210204
  Transmission Date: 20210419
  Serious: No
  Sender: FDA-Public Use
  Company Number: US-EXELIXIS-CABO-20034148

PATIENT
  Sex: Male

DRUGS (4)
  1. CABOMETYX [Suspect]
     Active Substance: CABOZANTINIB S-MALATE
     Dosage: 20 MG, QD
     Dates: start: 20201027
  2. ALDACTONE [Concomitant]
     Active Substance: SPIRONOLACTONE
  3. CABOMETYX [Suspect]
     Active Substance: CABOZANTINIB S-MALATE
     Indication: HEPATOCELLULAR CARCINOMA
     Dosage: 40 MG
     Dates: start: 20200929, end: 20201019
  4. CABOMETYX [Suspect]
     Active Substance: CABOZANTINIB S-MALATE
     Dosage: 20 MG, QOD

REACTIONS (9)
  - Diarrhoea [Unknown]
  - Oedema peripheral [Unknown]
  - Drug intolerance [Unknown]
  - Fatigue [Recovering/Resolving]
  - Blister [Unknown]
  - Dry mouth [Unknown]
  - Stomatitis [Recovering/Resolving]
  - Inappropriate schedule of product administration [Unknown]
  - Joint swelling [Unknown]
